FAERS Safety Report 17942296 (Version 3)
Quarter: 2022Q1

REPORT INFORMATION
  Report Type: Report from Study
  Country: BR (occurrence: BR)
  Receive Date: 20200624
  Receipt Date: 20220118
  Transmission Date: 20220423
  Serious: Yes (Death, Other)
  Sender: FDA-Public Use
  Company Number: NVSC2020BR177662

PATIENT
  Age: 69 Year
  Sex: Female

DRUGS (2)
  1. KISQALI [Suspect]
     Active Substance: RIBOCICLIB
     Indication: Product used for unknown indication
     Dosage: 3 DF, QD (3 TABLETS A DAY)
     Route: 065
     Dates: start: 20200225
  2. FASLODEX [Concomitant]
     Active Substance: FULVESTRANT
     Indication: Product used for unknown indication
     Dosage: UNK, (EVERY 28 DAYS)
     Route: 065
     Dates: start: 20200214

REACTIONS (4)
  - Neoplasm malignant [Fatal]
  - Diabetes mellitus inadequate control [Recovered/Resolved]
  - Pain [Unknown]
  - Anaemia [Not Recovered/Not Resolved]

NARRATIVE: CASE EVENT DATE: 20200612
